FAERS Safety Report 9537786 (Version 1)
Quarter: 2013Q3

REPORT INFORMATION
  Report Type: Spontaneous
  Country: JP (occurrence: JP)
  Receive Date: 20130919
  Receipt Date: 20130919
  Transmission Date: 20140515
  Serious: Yes (Other)
  Sender: FDA-Public Use
  Company Number: JP-PFIZER INC-2013263852

PATIENT
  Age: 58 Year
  Sex: Male

DRUGS (3)
  1. FLUOROURACIL [Suspect]
     Dosage: 1200 MG/BODY/DAY
     Dates: start: 2005, end: 2005
  2. CISPLATIN [Concomitant]
     Indication: OROPHARYNGEAL SQUAMOUS CELL CARCINOMA
     Dosage: 120 MG/BODY/DAY
     Dates: start: 2005, end: 2005
  3. CISPLATIN [Concomitant]
     Indication: OESOPHAGEAL SQUAMOUS CELL CARCINOMA

REACTIONS (2)
  - Altered state of consciousness [Recovering/Resolving]
  - Hyperammonaemia [Recovering/Resolving]
